FAERS Safety Report 8785215 (Version 4)
Quarter: 2014Q3

REPORT INFORMATION
  Report Type: Spontaneous
  Country: US (occurrence: US)
  Receive Date: 20120914
  Receipt Date: 20140818
  Transmission Date: 20150326
  Serious: Yes (Hospitalization, Disabling, Other)
  Sender: FDA-Public Use
  Company Number: US-009507513-2012SP028982

PATIENT
  Sex: Female
  Weight: 74.83 kg

DRUGS (1)
  1. NUVARING [Suspect]
     Active Substance: ETHINYL ESTRADIOL\ETONOGESTREL
     Indication: CONTRACEPTION
     Dosage: UNK
     Route: 067
     Dates: start: 20060315, end: 20111111

REACTIONS (17)
  - Pulmonary embolism [Unknown]
  - Lung infiltration [Unknown]
  - Pleural effusion [Unknown]
  - Pulmonary hypertension [Unknown]
  - Thrombectomy [Unknown]
  - Pulmonary infarction [Unknown]
  - Tricuspid valve incompetence [Unknown]
  - Deep vein thrombosis [Unknown]
  - Urinary tract infection [Unknown]
  - Catheterisation cardiac [Unknown]
  - Catheterisation cardiac [Unknown]
  - Heart rate irregular [Unknown]
  - Mental disorder [Unknown]
  - Right ventricular failure [Unknown]
  - Vena cava filter insertion [Unknown]
  - Atrial septal defect repair [Unknown]
  - Mitral valve incompetence [Unknown]

NARRATIVE: CASE EVENT DATE: 20110809
